FAERS Safety Report 8481356 (Version 2)
Quarter: 2013Q4

REPORT INFORMATION
  Report Type: Report from Study
  Country: CA (occurrence: CA)
  Receive Date: 20120329
  Receipt Date: 20131004
  Transmission Date: 20140711
  Serious: Yes (Other)
  Sender: FDA-Public Use
  Company Number: CA-UCBSA-052744

PATIENT
  Age: 50 Year
  Sex: Male
  Weight: 102.5 kg

DRUGS (4)
  1. CIMZIA [Suspect]
     Indication: ANKYLOSING SPONDYLITIS
     Route: 058
     Dates: start: 20110825
  2. CIMZIA [Suspect]
     Indication: ANKYLOSING SPONDYLITIS
     Route: 058
     Dates: start: 20110714, end: 20110811
  3. TYLENOL ARTHRITE [Concomitant]
     Indication: PAIN
     Route: 048
  4. PRISTIK [Concomitant]
     Indication: DEPRESSION
     Route: 048
     Dates: end: 201307

REACTIONS (4)
  - Herpes zoster [Recovered/Resolved]
  - Bursitis [Not Recovered/Not Resolved]
  - Arthralgia [Not Recovered/Not Resolved]
  - Musculoskeletal pain [Not Recovered/Not Resolved]
